FAERS Safety Report 11210351 (Version 2)
Quarter: 2016Q2

REPORT INFORMATION
  Report Type: Spontaneous
  Country: US (occurrence: US)
  Receive Date: 20150622
  Receipt Date: 20160511
  Transmission Date: 20160815
  Serious: Yes (Other)
  Sender: FDA-Public Use
  Company Number: US-ASTELLAS-2015US002937

PATIENT
  Age: 72 Year
  Sex: Female

DRUGS (1)
  1. VESICARE [Suspect]
     Active Substance: SOLIFENACIN SUCCINATE
     Indication: POLLAKIURIA
     Dosage: 05 MG, ONCE DAILY
     Route: 048

REACTIONS (9)
  - Cough [Unknown]
  - Throat irritation [Unknown]
  - Fall [Unknown]
  - Fall [Unknown]
  - Spinal fracture [Unknown]
  - Joint injury [Unknown]
  - Cardiospasm [Unknown]
  - Myocardial infarction [Unknown]
  - Malaise [Unknown]

NARRATIVE: CASE EVENT DATE: 20150125
